FAERS Safety Report 23041070 (Version 1)
Quarter: 2023Q4

REPORT INFORMATION
  Report Type: Report from Study
  Country: IT (occurrence: IT)
  Receive Date: 20231007
  Receipt Date: 20231007
  Transmission Date: 20240110
  Serious: Yes (Other)
  Sender: FDA-Public Use
  Company Number: IT-AMGEN-ITASP2023170058

PATIENT
  Age: 50 Year
  Sex: Female

DRUGS (2)
  1. TRASTUZUMAB [Suspect]
     Active Substance: TRASTUZUMAB
     Indication: Breast cancer
     Dosage: 180 MILLIGRAM, REACTIONS MANIFESTED AFTER IV CYCLE - START OF THERAPY 16-JUN-2023 - THERAPY EVERY 7
     Route: 042
     Dates: start: 20230707
  2. PACLITAXEL [Suspect]
     Active Substance: PACLITAXEL
     Indication: Breast cancer
     Dosage: 150 MILLIGRAM, CONCENTRATE FOR SOLUTION FOR INFUSION REACTIONS MANIFESTED AFTER IV CYCLE - START OF
     Route: 040
     Dates: start: 20230707

REACTIONS (5)
  - Azotaemia [Recovering/Resolving]
  - Neutropenia [Recovered/Resolved]
  - Leukopenia [Recovered/Resolved]
  - Paraesthesia [Recovering/Resolving]
  - Off label use [Recovering/Resolving]

NARRATIVE: CASE EVENT DATE: 20230707
